FAERS Safety Report 8012201-4 (Version None)
Quarter: 2011Q4

REPORT INFORMATION
  Report Type: 
  Country: None (occurrence: None)
  Receive Date: 20111228
  Receipt Date: 20111221
  Transmission Date: 20120403
  Serious: Yes (Other)
  Sender: FDA-Public Use
  Company Number: PHHO2011GB020914

PATIENT
  Sex: Male
  Weight: 95.4 kg

DRUGS (11)
  1. CITALOPRAM HYDROBROMIDE [Suspect]
     Indication: DEPRESSION
     Dosage: 20 MG, QD
     Dates: start: 20111128, end: 20111208
  2. BLINDED PLACEBO [Suspect]
     Indication: HEPATITIS C
     Dosage: DOUBLE BLINDED
     Route: 048
     Dates: start: 20110906, end: 20111212
  3. IBUPROFEN [Concomitant]
     Indication: CHEST PAIN
     Dosage: 400 UNK, PRN
     Dates: start: 20111004
  4. BLINDED DEB025 [Suspect]
     Indication: HEPATITIS C
     Dosage: DOUBLE BLINDED
     Route: 048
     Dates: start: 20110906, end: 20111212
  5. CALCIUM CARBONATE [Concomitant]
     Indication: BONE DENSITY DECREASED
     Dosage: UNK
     Dates: start: 20110901
  6. LISINOPRIL [Concomitant]
     Indication: HYPERTENSION
     Dosage: 20 MG, QD
     Route: 048
     Dates: start: 20101101
  7. ZOPICLONE [Concomitant]
  8. PEGASYS [Interacting]
     Indication: HEPATITIS C
  9. BLINDED NO TREATMENT RECEIVED [Suspect]
     Indication: HEPATITIS C
     Dosage: DOUBLE BLINDED
     Route: 048
     Dates: start: 20110906, end: 20111212
  10. METOCLOPRAMIDE [Concomitant]
     Indication: NAUSEA
     Dosage: 10 MG, TID
     Dates: start: 20110913
  11. ACETAMINOPHEN [Concomitant]
     Indication: CHEST PAIN
     Dosage: UNK/ 1
     Dates: start: 20110913

REACTIONS (3)
  - ANXIETY [None]
  - DEPRESSION [None]
  - DRUG INTERACTION [None]
